FAERS Safety Report 9246311 (Version 1)
Quarter: 2013Q2

REPORT INFORMATION
  Report Type: Spontaneous
  Country: US (occurrence: US)
  Receive Date: 20130422
  Receipt Date: 20130422
  Transmission Date: 20140414
  Serious: No
  Sender: FDA-Public Use
  Company Number: US-TEVA-398753USA

PATIENT
  Sex: Female

DRUGS (3)
  1. QNASL [Suspect]
     Indication: PRODUCT USED FOR UNKNOWN INDICATION
  2. TENORMIN [Concomitant]
     Indication: HYPERTENSION
  3. BENICAR [Concomitant]
     Indication: HYPERTENSION

REACTIONS (1)
  - Nausea [Unknown]
